FAERS Safety Report 21240169 (Version 1)
Quarter: 2022Q3

REPORT INFORMATION
  Report Type: Spontaneous
  Country: US (occurrence: None)
  Receive Date: 20220819
  Receipt Date: 20220819
  Transmission Date: 20221026
  Serious: Yes (Hospitalization)
  Sender: FDA-Public Use
  Company Number: None

PATIENT
  Sex: Female

DRUGS (10)
  1. STELARA [Suspect]
     Active Substance: USTEKINUMAB
     Indication: Crohn^s disease
     Route: 058
     Dates: start: 20200403
  2. FAMOTIDINE [Concomitant]
     Active Substance: FAMOTIDINE
  3. IMURAN [Concomitant]
     Active Substance: AZATHIOPRINE
  4. LIPITOR [Concomitant]
     Active Substance: ATORVASTATIN CALCIUM
  5. LOPERAMIDE [Concomitant]
     Active Substance: LOPERAMIDE
  6. MEDROL [Concomitant]
     Active Substance: METHYLPREDNISOLONE
  7. MELOXICAM [Concomitant]
     Active Substance: MELOXICAM
  8. PLAQUENIL [Concomitant]
     Active Substance: HYDROXYCHLOROQUINE SULFATE
  9. SKELAXIN [Concomitant]
     Active Substance: METAXALONE
  10. TPN ELECTROL INJ [Concomitant]

REACTIONS (1)
  - Product dose omission issue [None]
